FAERS Safety Report 6726693-1 (Version None)
Quarter: 2010Q2

REPORT INFORMATION
  Report Type: 
  Country: None (occurrence: None)
  Receive Date: 20100514
  Receipt Date: 20100506
  Transmission Date: 20101027
  Serious: Yes (Other)
  Sender: FDA-Public Use
  Company Number: US-MERCK-0705USA02891

PATIENT
  Age: 47 Year
  Sex: Female
  Weight: 84 kg

DRUGS (5)
  1. FOSAMAX PLUS D [Suspect]
     Indication: OSTEOPOROSIS
     Route: 048
     Dates: start: 20030101, end: 20040101
  2. METFORMIN [Concomitant]
     Indication: DIABETES MELLITUS
     Route: 065
     Dates: start: 19990101
  3. ALTACE [Concomitant]
     Indication: HYPERTENSION
     Route: 065
     Dates: start: 20010101
  4. [THERAPY UNSPECIFIED] [Concomitant]
     Indication: BLOOD CHOLESTEROL INCREASED
     Route: 065
     Dates: start: 20030101
  5. FOSAMAX [Suspect]
     Route: 048
     Dates: start: 20040701

REACTIONS (20)
  - BLOOD TESTOSTERONE DECREASED [None]
  - BLOOD TRIGLYCERIDES INCREASED [None]
  - DEAFNESS [None]
  - EAR PAIN [None]
  - GINGIVAL BLEEDING [None]
  - GINGIVAL DISORDER [None]
  - HEADACHE [None]
  - HIRSUTISM [None]
  - NASAL CONGESTION [None]
  - NEUROPATHY PERIPHERAL [None]
  - ORAL DISORDER [None]
  - ORAL INFECTION [None]
  - OROPHARYNGEAL PAIN [None]
  - OSTEONECROSIS OF JAW [None]
  - OSTEOPENIA [None]
  - PAIN IN EXTREMITY [None]
  - RHEUMATOID ARTHRITIS [None]
  - SENSATION OF HEAVINESS [None]
  - VISION BLURRED [None]
  - WEIGHT INCREASED [None]
